FAERS Safety Report 20463173 (Version 1)
Quarter: 2022Q1

REPORT INFORMATION
  Report Type: Spontaneous
  Country: JP (occurrence: JP)
  Receive Date: 20220211
  Receipt Date: 20220211
  Transmission Date: 20220423
  Serious: Yes (Life-Threatening, Other)
  Sender: FDA-Public Use
  Company Number: JP-JAZZ-2022-JP-003305

PATIENT
  Age: 6 Year
  Sex: Female
  Weight: 19.85 kg

DRUGS (3)
  1. DEFITELIO [Suspect]
     Active Substance: DEFIBROTIDE SODIUM
     Indication: Venoocclusive liver disease
     Dosage: 25 MILLIGRAM/KILOGRAM, QD
     Route: 042
     Dates: start: 20210821, end: 20211020
  2. ORGARAN [Suspect]
     Active Substance: DANAPAROID SODIUM
     Indication: Product used for unknown indication
     Dosage: UNKNOWN DOSE AND FREQUENCY
     Route: 042
     Dates: start: 20210823, end: 20211020
  3. HEPARIN SODIUM [Suspect]
     Active Substance: HEPARIN SODIUM
     Indication: Product used for unknown indication
     Dosage: UNKNOWN DOSE AND FREQUENCY
     Route: 042
     Dates: start: 20210823, end: 20211020

REACTIONS (3)
  - Haemorrhage [Recovered/Resolved with Sequelae]
  - Pericardial drainage [Unknown]
  - Renal failure [Unknown]

NARRATIVE: CASE EVENT DATE: 20211013
